FAERS Safety Report 13849924 (Version 1)
Quarter: 2017Q3

REPORT INFORMATION
  Report Type: Spontaneous
  Country: US (occurrence: US)
  Receive Date: 20170809
  Receipt Date: 20170809
  Transmission Date: 20171127
  Serious: No
  Sender: FDA-Public Use
  Company Number: US-ASTRAZENECA-2016SF32453

PATIENT
  Sex: Male

DRUGS (13)
  1. LOVASTATIN. [Concomitant]
     Active Substance: LOVASTATIN
     Route: 048
  2. JANUVIA [Concomitant]
     Active Substance: SITAGLIPTIN PHOSPHATE
     Route: 048
  3. CYCLOBENZAPRINE HYDROCHLORIDE. [Concomitant]
     Active Substance: CYCLOBENZAPRINE HYDROCHLORIDE
     Route: 048
  4. CIALIS [Concomitant]
     Active Substance: TADALAFIL
     Indication: BENIGN PROSTATIC HYPERPLASIA
     Route: 048
  5. GLIMEPIRIDE. [Concomitant]
     Active Substance: GLIMEPIRIDE
     Dosage: 1.0DF UNKNOWN
     Route: 048
  6. OMEPRAZOLE. [Concomitant]
     Active Substance: OMEPRAZOLE
     Route: 048
  7. ONGLYZA [Suspect]
     Active Substance: SAXAGLIPTIN HYDROCHLORIDE
     Dosage: DOSE UNKNOWN
     Route: 048
  8. HYDROCODONE/ACETAMINOPHEN [Concomitant]
     Active Substance: ACETAMINOPHEN\HYDROCODONE
     Indication: PAIN
     Dosage: 1.0DF AS REQUIRED
     Route: 048
  9. MELOXICAM. [Concomitant]
     Active Substance: MELOXICAM
     Indication: ARTHRALGIA
     Route: 048
  10. MORPHINE SULFATE. [Concomitant]
     Active Substance: MORPHINE SULFATE
     Route: 048
  11. METOPROLOL TARTRATE. [Concomitant]
     Active Substance: METOPROLOL TARTRATE
     Route: 048
  12. LYRICA [Suspect]
     Active Substance: PREGABALIN
     Route: 048
  13. VIAGRA [Suspect]
     Active Substance: SILDENAFIL CITRATE
     Dosage: 100 MG AS PNR
     Route: 048

REACTIONS (1)
  - Drug hypersensitivity [Unknown]
